FAERS Safety Report 6134828-7 (Version None)
Quarter: 2009Q1

REPORT INFORMATION
  Report Type: 
  Country: None (occurrence: None)
  Receive Date: 20090327
  Receipt Date: 20090324
  Transmission Date: 20090719
  Serious: Yes (Death)
  Sender: FDA-Public Use
  Company Number: US-JNJFOC-20090101122

PATIENT
  Sex: Female
  Weight: 96.44 kg

DRUGS (24)
  1. DURAGESIC-100 [Suspect]
     Indication: DRUG USE FOR UNKNOWN INDICATION
     Route: 062
  2. PROTONIX [Concomitant]
  3. VITAMIN B-12 [Concomitant]
     Dosage: 1000 MCG DAILY
  4. ASCORBIC ACID [Concomitant]
  5. CALCIUM D [Concomitant]
  6. KLONOPIN [Concomitant]
     Dosage: 1 MG BID-TID
  7. REMERON [Concomitant]
  8. PAXIL [Concomitant]
  9. RISPERDAL [Concomitant]
  10. MYCOLOG [Concomitant]
  11. CARAFATE [Concomitant]
     Dosage: 1 GRAM AFTER MEALS AT NIGHT
  12. ASPIRIN [Concomitant]
  13. COUMADIN [Concomitant]
  14. ENTOCORT EC [Concomitant]
     Dosage: AT AM
  15. TYLENOL [Concomitant]
     Dosage: AT 4 PM
  16. ALLEGRA [Concomitant]
  17. FOLIC ACID [Concomitant]
  18. NEURONTIN [Concomitant]
  19. TOPROL-XL [Concomitant]
  20. PREDNISONE [Concomitant]
  21. REMICADE [Concomitant]
  22. PHENEGRAM [Concomitant]
     Dosage: 12.5 GRAMS EVERY 6 PM
  23. REGUIP [Concomitant]
     Dosage: 1GRAM + 0.5 GRAM EVERY HOUR OF SLEEP
  24. PENTASA [Concomitant]
     Route: 065

REACTIONS (4)
  - CROHN'S DISEASE [None]
  - DEEP VEIN THROMBOSIS [None]
  - HYPERTENSION [None]
  - PULMONARY EMBOLISM [None]
